FAERS Safety Report 8338437-0 (Version None)
Quarter: 2012Q2

REPORT INFORMATION
  Report Type: 
  Country: None (occurrence: None)
  Receive Date: 20120504
  Receipt Date: 20120424
  Transmission Date: 20120825
  Serious: Yes (Hospitalization, Other)
  Sender: FDA-Public Use
  Company Number: AU-ROCHE-1065127

PATIENT
  Sex: Female

DRUGS (1)
  1. LUCENTIS [Suspect]
     Indication: PRODUCT USED FOR UNKNOWN INDICATION
     Route: 050
     Dates: start: 20111201, end: 20120201

REACTIONS (4)
  - DRY EYE [None]
  - COLONIC POLYP [None]
  - OCULAR DISCOMFORT [None]
  - RETINAL PIGMENT EPITHELIAL TEAR [None]
